FAERS Safety Report 17871386 (Version 1)
Quarter: 2020Q2

REPORT INFORMATION
  Report Type: Report from Study
  Country: IN (occurrence: IN)
  Receive Date: 20200608
  Receipt Date: 20200608
  Transmission Date: 20200714
  Serious: Yes (Other)
  Sender: FDA-Public Use
  Company Number: NVSC2020IN158418

PATIENT
  Age: 63 Year
  Sex: Male
  Weight: 72 kg

DRUGS (1)
  1. GALVUS MET [Suspect]
     Active Substance: METFORMIN HYDROCHLORIDE\VILDAGLIPTIN
     Indication: DIABETES MELLITUS
     Dosage: 1 DF, BID (500 MG METFORMIN, 50 MG VILDAGLIPTIN) (1-0-1))
     Route: 048
     Dates: start: 20200601

REACTIONS (3)
  - Gastritis [Unknown]
  - Hypertension [Unknown]
  - Overweight [Unknown]

NARRATIVE: CASE EVENT DATE: 20200602
